FAERS Safety Report 15125843 (Version 1)
Quarter: 2018Q3

REPORT INFORMATION
  Report Type: Spontaneous
  Country: US (occurrence: US)
  Receive Date: 20180614
  Receipt Date: 20180614
  Transmission Date: 20181010
  Serious: No
  Sender: FDA-Public Use
  Company Number: None

PATIENT
  Age: 81 Year
  Sex: Male
  Weight: 102.87 kg

DRUGS (2)
  1. MELATONIN [Suspect]
     Active Substance: MELATONIN
     Indication: INSOMNIA
     Route: 048
     Dates: start: 20180305, end: 20180307
  2. TRAZODONE [Suspect]
     Active Substance: TRAZODONE HYDROCHLORIDE
     Indication: INSOMNIA
     Dates: start: 20180305, end: 20180307

REACTIONS (5)
  - Aphasia [None]
  - Metabolic encephalopathy [None]
  - Transient ischaemic attack [None]
  - Hypercapnia [None]
  - Hypoxia [None]

NARRATIVE: CASE EVENT DATE: 20180308
